FAERS Safety Report 23067764 (Version 2)
Quarter: 2023Q4

REPORT INFORMATION
  Report Type: Spontaneous
  Country: US (occurrence: None)
  Receive Date: 20231016
  Receipt Date: 20231017
  Transmission Date: 20240110
  Serious: No
  Sender: FDA-Public Use
  Company Number: US-ARIS GLOBAL-ADM202209-003054

PATIENT
  Age: 72 Year
  Sex: Female

DRUGS (17)
  1. GOCOVRI [Suspect]
     Active Substance: AMANTADINE
     Indication: Parkinson^s disease
     Route: 048
     Dates: start: 20220530, end: 20220912
  2. GOCOVRI [Suspect]
     Active Substance: AMANTADINE
     Route: 048
     Dates: start: 20220527
  3. Omega-3-6-9 [Concomitant]
     Dosage: NOT PROVIDED
  4. VITAMIN D [Concomitant]
     Active Substance: VITAMIN D NOS
     Dosage: 20000 IU
  5. AMANTADINE [Concomitant]
     Active Substance: AMANTADINE
  6. ASPIRIN [Concomitant]
     Active Substance: ASPIRIN
     Dosage: NOT PROVIDED
  7. ATORVASTATIN [Concomitant]
     Active Substance: ATORVASTATIN
  8. CARAFATE [Concomitant]
     Active Substance: SUCRALFATE
  9. COREG [Concomitant]
     Active Substance: CARVEDILOL
  10. DULOXETINE [Concomitant]
     Active Substance: DULOXETINE
  11. FAMOTIDINE [Concomitant]
     Active Substance: FAMOTIDINE
  12. FUROSEMIDE [Concomitant]
     Active Substance: FUROSEMIDE
  13. LOSARTAN [Concomitant]
     Active Substance: LOSARTAN
  14. METFORMIN [Concomitant]
     Active Substance: METFORMIN HYDROCHLORIDE
  15. QUETIAPINE [Concomitant]
     Active Substance: QUETIAPINE
  16. ZETIA [Concomitant]
     Active Substance: EZETIMIBE
  17. CARBIDOPA\LEVODOPA [Concomitant]
     Active Substance: CARBIDOPA\LEVODOPA
     Dosage: EACH DF CONTAINS 25/250 MG

REACTIONS (2)
  - Parkinson^s disease [Not Recovered/Not Resolved]
  - Drug ineffective [Unknown]

NARRATIVE: CASE EVENT DATE: 20220912
